FAERS Safety Report 25274203 (Version 1)
Quarter: 2025Q2

REPORT INFORMATION
  Report Type: Spontaneous
  Country: US (occurrence: None)
  Receive Date: 20250506
  Receipt Date: 20250506
  Transmission Date: 20250717
  Serious: Yes (Death)
  Sender: INCYTE
  Company Number: US-002147023-NVSC2025US067356

PATIENT
  Age: 14 Year

DRUGS (15)
  1. JAKAFI [Suspect]
     Active Substance: RUXOLITINIB
     Indication: Disseminated intravascular coagulation
     Dosage: 5 MG, BID
     Route: 065
  2. JAKAFI [Suspect]
     Active Substance: RUXOLITINIB
     Indication: Pulmonary haemorrhage
  3. JAKAFI [Suspect]
     Active Substance: RUXOLITINIB
     Indication: Gastrointestinal haemorrhage
  4. JAKAFI [Suspect]
     Active Substance: RUXOLITINIB
     Indication: Adenovirus infection
  5. JAKAFI [Suspect]
     Active Substance: RUXOLITINIB
     Indication: Sepsis
  6. JAKAFI [Suspect]
     Active Substance: RUXOLITINIB
     Indication: Enterobacter infection
  7. JAKAFI [Suspect]
     Active Substance: RUXOLITINIB
     Indication: Immune system disorder
  8. TOCILIZUMAB [Concomitant]
     Active Substance: TOCILIZUMAB
     Indication: Hepatic failure
     Dosage: 12 MG/KG, QMO
  9. TOCILIZUMAB [Concomitant]
     Active Substance: TOCILIZUMAB
     Indication: Gastrointestinal disorder
  10. RITUXIMAB [Concomitant]
     Active Substance: RITUXIMAB
     Indication: Product used for unknown indication
     Route: 065
  11. CYCLOPHOSPHAMIDE [Concomitant]
     Active Substance: CYCLOPHOSPHAMIDE
     Indication: Product used for unknown indication
     Route: 065
  12. SIROLIMUS [Concomitant]
     Active Substance: SIROLIMUS
     Indication: Product used for unknown indication
     Route: 065
  13. TACROLIMUS [Concomitant]
     Active Substance: TACROLIMUS
     Indication: Product used for unknown indication
     Route: 065
  14. MYCOPHENOLATE MOFETIL [Concomitant]
     Active Substance: MYCOPHENOLATE MOFETIL
     Indication: Product used for unknown indication
     Route: 065
  15. PREDNISONE [Concomitant]
     Active Substance: PREDNISONE
     Indication: Product used for unknown indication
     Route: 065

REACTIONS (2)
  - Drug ineffective for unapproved indication [Fatal]
  - Multiple organ dysfunction syndrome [Fatal]
